FAERS Safety Report 5934886-6 (Version None)
Quarter: 2008Q4

REPORT INFORMATION
  Report Type: 
  Country: None (occurrence: None)
  Receive Date: 20081027
  Receipt Date: 20081014
  Transmission Date: 20090506
  Serious: Yes (Hospitalization)
  Sender: FDA-Public Use
  Company Number: 2008BI026464

PATIENT
  Age: 62 Year
  Sex: Female

DRUGS (4)
  1. AVONEX [Suspect]
     Indication: MULTIPLE SCLEROSIS
     Dosage: 30 UG; QW; IM, 30 UG; QW; IM
     Route: 030
     Dates: end: 20080703
  2. AVONEX [Suspect]
     Indication: MULTIPLE SCLEROSIS
     Dosage: 30 UG; QW; IM, 30 UG; QW; IM
     Route: 030
     Dates: start: 19960101
  3. CON MEDS [Concomitant]
  4. PREV MEDS [Concomitant]

REACTIONS (8)
  - ABASIA [None]
  - BEDRIDDEN [None]
  - CONDITION AGGRAVATED [None]
  - DIZZINESS [None]
  - MULTIPLE SCLEROSIS [None]
  - SINUSITIS [None]
  - THYROID NEOPLASM [None]
  - THYROTOXIC CRISIS [None]
